FAERS Safety Report 26122836 (Version 1)
Quarter: 2025Q4

REPORT INFORMATION
  Report Type: Spontaneous
  Country: CN (occurrence: CN)
  Receive Date: 20251204
  Receipt Date: 20251204
  Transmission Date: 20260118
  Serious: Yes (Hospitalization)
  Sender: PFIZER
  Company Number: CN-PFIZER INC-PV202500140647

PATIENT
  Age: 72 Year
  Sex: Male
  Weight: 60 kg

DRUGS (2)
  1. CYTARABINE [Suspect]
     Active Substance: CYTARABINE
     Indication: Acute myeloid leukaemia
     Dosage: 0.015 G, 2X/DAY
     Route: 058
     Dates: start: 20251119, end: 20251119
  2. STERILE WATER [Concomitant]
     Active Substance: WATER
     Indication: Vehicle solution use
     Dosage: 2 ML, 2X/DAY
     Route: 058
     Dates: start: 20251119, end: 20251119

REACTIONS (2)
  - Tachypnoea [Recovering/Resolving]
  - Chest discomfort [Recovering/Resolving]

NARRATIVE: CASE EVENT DATE: 20251119
